FAERS Safety Report 4555958-7 (Version None)
Quarter: 2005Q1

REPORT INFORMATION
  Report Type: 
  Country: None (occurrence: None)
  Receive Date: 20050112
  Receipt Date: 20031118
  Transmission Date: 20050727
  Serious: Yes (Other)
  Sender: FDA-Public Use
  Company Number: 200328623BWH

PATIENT
  Age: 47 Year
  Sex: Male
  Weight: 83.9154 kg

DRUGS (3)
  1. CIPRO [Suspect]
     Indication: BACTERIAL INFECTION
     Dosage: 1000 MG, TOTAL DAILY, ORAL
     Route: 048
  2. CIPRO [Suspect]
     Indication: PROSTATITIS
     Dosage: 1000 MG, TOTAL DAILY, ORAL
     Route: 048
  3. DITROPAN [Concomitant]

REACTIONS (1)
  - BLOOD URINE PRESENT [None]
